FAERS Safety Report 19569461 (Version 1)
Quarter: 2021Q3

REPORT INFORMATION
  Report Type: Spontaneous
  Country: US (occurrence: US)
  Receive Date: 20210716
  Receipt Date: 20210716
  Transmission Date: 20211014
  Serious: Yes (Hospitalization, Other)
  Sender: FDA-Public Use
  Company Number: US-PFIZER INC-2021833278

PATIENT
  Sex: Female

DRUGS (1)
  1. GABAPENTIN. [Suspect]
     Active Substance: GABAPENTIN
     Dosage: 3000 MG, 1X/DAY

REACTIONS (4)
  - Coeliac disease [Unknown]
  - Malaise [Unknown]
  - Drug withdrawal syndrome [Unknown]
  - Seizure [Unknown]
